FAERS Safety Report 11999895 (Version 1)
Quarter: 2016Q1

REPORT INFORMATION
  Report Type: Spontaneous
  Country: US (occurrence: US)
  Receive Date: 20160204
  Receipt Date: 20160204
  Transmission Date: 20160526
  Serious: Yes (Other)
  Sender: FDA-Public Use
  Company Number: US-WATSON-2016-01876

PATIENT
  Age: 64 Year
  Sex: Female

DRUGS (3)
  1. CYCLOBENZAPRINE HYDROCHLORIDE (ACTAVIS LABORATORIES FL) [Suspect]
     Active Substance: CYCLOBENZAPRINE HYDROCHLORIDE
     Indication: CERVICAL RADICULOPATHY
     Dosage: UNK
     Route: 065
  2. NAPROXEN (WATSON LABORATORIES) [Suspect]
     Active Substance: NAPROXEN
     Indication: CERVICAL RADICULOPATHY
     Dosage: 250 MG, DAILY
     Route: 065
  3. NAPROXEN (WATSON LABORATORIES) [Suspect]
     Active Substance: NAPROXEN
     Dosage: 100 MG, DAILY
     Route: 065

REACTIONS (1)
  - Serum sickness-like reaction [Recovered/Resolved]
